FAERS Safety Report 9565126 (Version 1)
Quarter: 2013Q3

REPORT INFORMATION
  Report Type: Spontaneous
  Country: NL (occurrence: NL)
  Receive Date: 20130930
  Receipt Date: 20130930
  Transmission Date: 20140515
  Serious: Yes (Hospitalization)
  Sender: FDA-Public Use
  Company Number: NL-AMGEN-NLDSP2013067662

PATIENT
  Age: 80 Year
  Sex: Female

DRUGS (2)
  1. ARANESP [Suspect]
     Indication: RENAL FAILURE CHRONIC
     Dosage: 60 MG, Q3WK
     Route: 058
     Dates: start: 20090310
  2. INSULIN                            /00646001/ [Concomitant]

REACTIONS (2)
  - Vomiting [Unknown]
  - Diarrhoea [Unknown]
